FAERS Safety Report 18089222 (Version 1)
Quarter: 2020Q3

REPORT INFORMATION
  Report Type: Report from Study
  Country: US (occurrence: US)
  Receive Date: 20200730
  Receipt Date: 20200730
  Transmission Date: 20201103
  Serious: Yes (Other)
  Sender: FDA-Public Use
  Company Number: US-AUROBINDO-AUR-APL-2020-036201

PATIENT

DRUGS (1)
  1. VINCRISTINE SULFATE. [Suspect]
     Active Substance: VINCRISTINE SULFATE
     Dosage: UNK
     Route: 065

REACTIONS (25)
  - Neck pain [Unknown]
  - Atelectasis [Unknown]
  - Insomnia [Unknown]
  - Productive cough [Unknown]
  - Non-cardiac chest pain [Unknown]
  - Infusion related reaction [Recovered/Resolved]
  - Pain in extremity [Unknown]
  - Rash maculo-papular [Unknown]
  - Pericardial effusion [Unknown]
  - Back pain [Unknown]
  - Oedema peripheral [Unknown]
  - Lymphocyte count [Unknown]
  - Embolism [Recovered/Resolved]
  - Dysphagia [Unknown]
  - Hypertension [Unknown]
  - Dysphonia [Unknown]
  - Rash pustular [Unknown]
  - Oropharyngeal pain [Unknown]
  - Constipation [Unknown]
  - Alanine aminotransferase [Unknown]
  - Arthralgia [Unknown]
  - Obesity [Unknown]
  - Aspartate aminotransferase [Unknown]
  - Pleural effusion [Unknown]
  - Neck pain [Recovered/Resolved]

NARRATIVE: CASE EVENT DATE: 20180101
